FAERS Safety Report 10348946 (Version 2)
Quarter: 2014Q3

REPORT INFORMATION
  Report Type: Spontaneous
  Country: US (occurrence: US)
  Receive Date: 20140729
  Receipt Date: 20140729
  Transmission Date: 20150326
  Serious: Yes (Hospitalization, Other)
  Sender: FDA-Public Use
  Company Number: US-009507513-2011SP046640

PATIENT
  Sex: Female
  Weight: 99.79 kg

DRUGS (4)
  1. NUVARING [Suspect]
     Active Substance: ETHINYL ESTRADIOL\ETONOGESTREL
     Route: 067
     Dates: start: 200310
  2. NUVARING [Suspect]
     Active Substance: ETHINYL ESTRADIOL\ETONOGESTREL
     Indication: CONTRACEPTION
     Dosage: ACCORDING TO PLAINTIFF FACT SHEETS DOSING DATES, PATIENT BECAME PREGNANT WHILE ON NUVARING.
     Route: 067
     Dates: start: 2002
  3. NUVARING [Suspect]
     Active Substance: ETHINYL ESTRADIOL\ETONOGESTREL
     Route: 067
     Dates: start: 20050125, end: 2006
  4. NUVARING [Suspect]
     Active Substance: ETHINYL ESTRADIOL\ETONOGESTREL
     Route: 067
     Dates: end: 20081013

REACTIONS (18)
  - Unintended pregnancy [Recovered/Resolved]
  - Rash [Unknown]
  - Oligohydramnios [Recovered/Resolved]
  - Ligament sprain [Not Recovered/Not Resolved]
  - Alopecia [Unknown]
  - Headache [Recovered/Resolved]
  - Anxiety [Recovering/Resolving]
  - Ankle operation [Unknown]
  - Contusion [Unknown]
  - Thrombosis [Unknown]
  - Tendonitis [Unknown]
  - Pulmonary embolism [Unknown]
  - Deep vein thrombosis [Unknown]
  - Musculoskeletal stiffness [Unknown]
  - Pain in extremity [Unknown]
  - Gastrooesophageal reflux disease [Recovered/Resolved]
  - Gestational diabetes [Recovered/Resolved]
  - Weight increased [Unknown]

NARRATIVE: CASE EVENT DATE: 2005
